FAERS Safety Report 11047588 (Version 1)
Quarter: 2015Q2

REPORT INFORMATION
  Report Type: Report from Study
  Country: MX (occurrence: MX)
  Receive Date: 20150420
  Receipt Date: 20150420
  Transmission Date: 20150821
  Serious: Yes (Disabling, Other)
  Sender: FDA-Public Use
  Company Number: MX-SA-2015SA049423

PATIENT
  Age: 50 Year
  Sex: Female
  Weight: 64 kg

DRUGS (2)
  1. LANTUS SOLOSTAR [Suspect]
     Active Substance: INSULIN GLARGINE
     Indication: TYPE 2 DIABETES MELLITUS
     Route: 058
     Dates: start: 2013
  2. SOLOSTAR [Concomitant]
     Active Substance: DEVICE
     Indication: TYPE 2 DIABETES MELLITUS
     Route: 058
     Dates: start: 2013

REACTIONS (5)
  - Retinal detachment [Not Recovered/Not Resolved]
  - Blepharitis [Recovered/Resolved]
  - Retinal detachment [Recovered/Resolved with Sequelae]
  - Blindness unilateral [Not Recovered/Not Resolved]
  - Hyperglycaemia [Not Recovered/Not Resolved]

NARRATIVE: CASE EVENT DATE: 2013
